FAERS Safety Report 5889912-X (Version None)
Quarter: 2008Q3

REPORT INFORMATION
  Report Type: 
  Country: None (occurrence: None)
  Receive Date: 20080919
  Receipt Date: 20080911
  Transmission Date: 20090109
  Serious: Yes (Hospitalization, Other)
  Sender: FDA-Public Use
  Company Number: PHHY2008BR10091

PATIENT
  Sex: Female
  Weight: 70 kg

DRUGS (2)
  1. SANDOSTATIN LAR [Suspect]
     Indication: ACROMEGALY
     Dosage: 20 MG, QMO
     Route: 030
     Dates: start: 20070427
  2. SANDOSTATIN LAR [Suspect]
     Dosage: 30 MG, QMO
     Route: 030
     Dates: start: 20071025

REACTIONS (5)
  - BLOOD GROWTH HORMONE ABNORMAL [None]
  - DRUG INEFFECTIVE [None]
  - INSULIN-LIKE GROWTH FACTOR INCREASED [None]
  - PITUITARY TUMOUR BENIGN [None]
  - SURGERY [None]
